FAERS Safety Report 9852636 (Version 2)
Quarter: 2014Q3

REPORT INFORMATION
  Report Type: Report from Study
  Country: US (occurrence: US)
  Receive Date: 20140129
  Receipt Date: 20140718
  Transmission Date: 20150326
  Serious: Yes (Hospitalization)
  Sender: FDA-Public Use
  Company Number: US-JNJFOC-20140113895

PATIENT
  Age: 17 Year
  Sex: Female
  Weight: 52 kg

DRUGS (14)
  1. 5-ASA [Concomitant]
     Active Substance: MESALAMINE
     Route: 054
  2. PREVACID [Concomitant]
     Active Substance: LANSOPRAZOLE
     Route: 065
  3. IRON SUCROSE [Concomitant]
     Active Substance: IRON SUCROSE
     Route: 065
  4. AZITHROMYCIN [Concomitant]
     Active Substance: AZITHROMYCIN ANHYDROUS
     Route: 065
  5. REMICADE [Suspect]
     Active Substance: INFLIXIMAB
     Indication: CROHN^S DISEASE
     Route: 042
     Dates: start: 20081111, end: 2008
  6. FLEXERIL [Concomitant]
     Active Substance: CYCLOBENZAPRINE HYDROCHLORIDE
     Route: 065
  7. NEUPOGEN [Concomitant]
     Active Substance: FILGRASTIM
     Route: 065
  8. CENTRUM NOS [Concomitant]
     Route: 065
  9. IBUPROFEN. [Concomitant]
     Active Substance: IBUPROFEN
     Route: 065
  10. METRONIDAZOLE. [Concomitant]
     Active Substance: METRONIDAZOLE
     Route: 065
  11. ACETAMINOPHEN. [Concomitant]
     Active Substance: ACETAMINOPHEN
     Route: 065
  12. ALEVE [Concomitant]
     Active Substance: NAPROXEN SODIUM
     Route: 065
  13. FISH OIL [Concomitant]
     Active Substance: FISH OIL
     Route: 065
  14. LACTATED RINGERS [Concomitant]
     Active Substance: CALCIUM CHLORIDE\POTASSIUM CHLORIDE\SODIUM CHLORIDE\SODIUM LACTATE
     Route: 065

REACTIONS (2)
  - Pelvic abscess [Recovered/Resolved with Sequelae]
  - Ileal stenosis [Recovered/Resolved with Sequelae]

NARRATIVE: CASE EVENT DATE: 20130807
